FAERS Safety Report 9930996 (Version 1)
Quarter: 2014Q1

REPORT INFORMATION
  Report Type: Spontaneous
  Country: TR (occurrence: TR)
  Receive Date: 20140227
  Receipt Date: 20140227
  Transmission Date: 20141002
  Serious: Yes (Death, Other)
  Sender: FDA-Public Use
  Company Number: PHHY2014TR023462

PATIENT
  Age: 16 Year
  Sex: Female

DRUGS (7)
  1. CICLOSPORIN [Suspect]
     Indication: IMMUNOSUPPRESSION
  2. TACROLIMUS [Suspect]
     Indication: IMMUNOSUPPRESSION
     Dosage: 2 MG, PER DAY
     Route: 048
  3. TACROLIMUS [Suspect]
     Dosage: 6 MG, PER DAY
     Route: 048
  4. TACROLIMUS [Suspect]
     Dosage: 10 MG, PER DAY
  5. TACROLIMUS [Suspect]
     Dosage: 4 MG, PER DAY
     Route: 048
  6. MYCOPHENOLATE MOFETIL [Suspect]
     Indication: IMMUNOSUPPRESSION
     Dosage: 1000 MG, PER DAY
  7. PREDNISOLONE [Suspect]
     Indication: IMMUNOSUPPRESSION
     Dosage: 100 MG, PER DAY
     Route: 042

REACTIONS (7)
  - Sepsis [Fatal]
  - Multi-organ failure [Fatal]
  - Malaise [Fatal]
  - Pyrexia [Fatal]
  - Liver transplant rejection [Unknown]
  - Convulsion [Unknown]
  - Drug ineffective [Unknown]
